FAERS Safety Report 8947754 (Version 2)
Quarter: 2013Q1

REPORT INFORMATION
  Report Type: Report from Study
  Country: US (occurrence: US)
  Receive Date: 20121204
  Receipt Date: 20130313
  Transmission Date: 20140127
  Serious: Yes (Other)
  Sender: FDA-Public Use
  Company Number: US-ABBOTT-12P-163-1014376-00

PATIENT
  Sex: Male
  Weight: 99.88 kg

DRUGS (3)
  1. HUMIRA [Suspect]
     Indication: CROHN^S DISEASE
     Dates: start: 201208
  2. BISOPROLOL HCT [Concomitant]
     Indication: HYPERTENSION
  3. LIALDA [Concomitant]
     Indication: CROHN^S DISEASE

REACTIONS (5)
  - Liver injury [Unknown]
  - Local swelling [Recovered/Resolved]
  - Abdominal distension [Recovered/Resolved]
  - Hepatic cirrhosis [Unknown]
  - Haemoglobin decreased [Recovered/Resolved]
